FAERS Safety Report 6791360-5 (Version None)
Quarter: 2010Q2

REPORT INFORMATION
  Report Type: 
  Country: None (occurrence: None)
  Receive Date: 20100618
  Receipt Date: 20100614
  Transmission Date: 20101027
  Serious: Yes (Hospitalization, Other)
  Sender: FDA-Public Use
  Company Number: 2009-198554-NL

PATIENT
  Age: 31 Year
  Sex: Female
  Weight: 90.7194 kg

DRUGS (13)
  1. NUVARING [Suspect]
     Indication: CONTRACEPTION
     Dosage: 1 DF; Q3W; VAG,; VAG
     Route: 067
     Dates: end: 20080303
  2. NUVARING [Suspect]
     Indication: CONTRACEPTION
     Dosage: 1 DF; Q3W; VAG,; VAG
     Route: 067
     Dates: start: 20040101
  3. ALLEGRA [Concomitant]
  4. GYNAZOLE [Concomitant]
  5. CLINDESSE [Concomitant]
  6. OXYCODONE HCL AND ACETAMINOPHEN [Concomitant]
  7. PROMETHAZINE [Concomitant]
  8. GLIMEPIRIDE [Concomitant]
  9. FEXOFENADINE [Concomitant]
  10. FLUTICASONE [Concomitant]
  11. XOPENEX [Concomitant]
  12. METRONIDAZOLE [Concomitant]
  13. ANAPROX DS [Concomitant]

REACTIONS (31)
  - BACTERAEMIA [None]
  - BLOOD CHOLESTEROL INCREASED [None]
  - DIZZINESS [None]
  - DYSMENORRHOEA [None]
  - FALL [None]
  - FATIGUE [None]
  - FOETAL DISORDER [None]
  - HAEMODYNAMIC INSTABILITY [None]
  - HYPERHIDROSIS [None]
  - INTERNATIONAL NORMALISED RATIO INCREASED [None]
  - LEFT VENTRICULAR HYPERTROPHY [None]
  - LOSS OF CONSCIOUSNESS [None]
  - LOW DENSITY LIPOPROTEIN INCREASED [None]
  - PALPITATIONS [None]
  - PELVIC PAIN [None]
  - PHLEBITIS [None]
  - POST PROCEDURAL INFECTION [None]
  - PREGNANCY WITH IMPLANT CONTRACEPTIVE [None]
  - PREMATURE BABY [None]
  - PREMATURE RUPTURE OF MEMBRANES [None]
  - PROTHROMBIN TIME PROLONGED [None]
  - PULMONARY EMBOLISM [None]
  - RETAINED PLACENTA OR MEMBRANES [None]
  - RIGHT VENTRICULAR HYPERTROPHY [None]
  - SEASONAL ALLERGY [None]
  - TREATMENT NONCOMPLIANCE [None]
  - UTERINE LEIOMYOMA [None]
  - VAGINITIS BACTERIAL [None]
  - VOMITING [None]
  - WOUND INFECTION STAPHYLOCOCCAL [None]
  - WOUND SEPSIS [None]
